FAERS Safety Report 21677642 (Version 2)
Quarter: 2022Q4

REPORT INFORMATION
  Report Type: Report from Study
  Country: US (occurrence: US)
  Receive Date: 20221203
  Receipt Date: 20221208
  Transmission Date: 20230113
  Serious: No
  Sender: FDA-Public Use
  Company Number: US-002147023-NVSC2022US280138

PATIENT
  Age: 70 Year
  Sex: Female

DRUGS (1)
  1. LEQVIO [Suspect]
     Active Substance: INCLISIRAN SODIUM
     Indication: Product used for unknown indication
     Dosage: UNK
     Route: 058
     Dates: start: 20220930

REACTIONS (10)
  - Rhinorrhoea [Unknown]
  - Dysuria [Unknown]
  - Pain [Unknown]
  - Low density lipoprotein decreased [Unknown]
  - Pyrexia [Unknown]
  - Food aversion [Unknown]
  - Vomiting [Unknown]
  - Fatigue [Unknown]
  - Dyspnoea [Unknown]
  - Urinary tract infection [Unknown]

NARRATIVE: CASE EVENT DATE: 20220930
